FAERS Safety Report 4726528-2 (Version None)
Quarter: 2005Q3

REPORT INFORMATION
  Report Type: 
  Country: None (occurrence: None)
  Receive Date: 20050727
  Receipt Date: 20050725
  Transmission Date: 20060218
  Serious: Yes (Hospitalization)
  Sender: FDA-Public Use
  Company Number: FR-MERCK-0507FRA00079

PATIENT
  Age: 46 Year
  Sex: Female
  Weight: 47 kg

DRUGS (11)
  1. ZETIA [Suspect]
     Indication: HYPERCHOLESTEROLAEMIA
     Route: 048
     Dates: start: 20050101, end: 20050601
  2. ROSUVASTATIN CALCIUM [Suspect]
     Indication: HYPERCHOLESTEROLAEMIA
     Route: 048
     Dates: start: 20040601, end: 20050601
  3. ATENOLOL [Concomitant]
     Route: 048
     Dates: start: 19960101
  4. MAGNESIUM LACTATE AND PYRIDOXINE HYDROCHLORIDE [Concomitant]
     Route: 048
     Dates: start: 20000101
  5. ASPIRIN LYSINE [Concomitant]
     Indication: THROMBOSIS PROPHYLAXIS
     Route: 048
     Dates: start: 20050101
  6. AMLODIPINE BESYLATE [Concomitant]
     Route: 048
     Dates: start: 20020101
  7. CLOPIDOGREL BISULFATE [Concomitant]
     Indication: THROMBOSIS PROPHYLAXIS
     Route: 048
     Dates: start: 20030101
  8. OXYBUTYNIN CHLORIDE [Concomitant]
     Route: 048
     Dates: start: 20040201
  9. ZIDOVUDINE [Concomitant]
     Indication: HIV INFECTION
     Route: 048
  10. LAMIVUDINE [Concomitant]
     Indication: HIV INFECTION
     Route: 048
  11. EFAVIRENZ [Concomitant]
     Indication: HIV INFECTION
     Route: 048

REACTIONS (6)
  - ASPARTATE AMINOTRANSFERASE INCREASED [None]
  - CONJUNCTIVITIS [None]
  - HEPATOMEGALY [None]
  - PYREXIA [None]
  - RHABDOMYOLYSIS [None]
  - RHINITIS [None]
